FAERS Safety Report 13466676 (Version 1)
Quarter: 2017Q2

REPORT INFORMATION
  Report Type: Spontaneous
  Country: US (occurrence: US)
  Receive Date: 20170420
  Receipt Date: 20170420
  Transmission Date: 20170830
  Serious: Yes (Hospitalization)
  Sender: FDA-Public Use
  Company Number: None

PATIENT
  Age: 61 Year
  Sex: Female

DRUGS (1)
  1. POMALYST [Suspect]
     Active Substance: POMALIDOMIDE
     Indication: PLASMA CELL MYELOMA
     Route: 048
     Dates: start: 20170312

REACTIONS (9)
  - Pyrexia [None]
  - Shigella test positive [None]
  - Pancreatitis [None]
  - Diarrhoea [None]
  - Clostridium test positive [None]
  - Septic shock [None]
  - Vomiting [None]
  - Organ failure [None]
  - Culture positive [None]

NARRATIVE: CASE EVENT DATE: 20170323
